FAERS Safety Report 4421454-0 (Version None)
Quarter: 2004Q3

REPORT INFORMATION
  Report Type: 
  Country: None (occurrence: None)
  Receive Date: 20040712
  Receipt Date: 20040412
  Transmission Date: 20050211
  Serious: No
  Sender: FDA-Public Use
  Company Number: 2003-12-0525

PATIENT
  Age: 60 Year
  Sex: Female

DRUGS (2)
  1. CLARINEX [Suspect]
     Indication: RHINITIS ALLERGIC
     Dosage: 5 MG Q DAY ORAL
     Route: 048
     Dates: start: 20030819, end: 20030905
  2. BIAXIN XL [Concomitant]

REACTIONS (2)
  - HALLUCINATION [None]
  - NIGHTMARE [None]
